FAERS Safety Report 4967280-5 (Version None)
Quarter: 2006Q2

REPORT INFORMATION
  Report Type: 
  Country: None (occurrence: None)
  Receive Date: 20060404
  Receipt Date: 20060328
  Transmission Date: 20061013
  Serious: Yes (Other)
  Sender: FDA-Public Use
  Company Number: HQWYE212503NOV04

PATIENT
  Age: 56 Year
  Sex: Female

DRUGS (4)
  1. PREMPRO [Suspect]
     Dosage: UNK
     Route: 065
  2. CYCRIN [Suspect]
     Dosage: UNK
     Route: 065
  3. PREMARIN [Suspect]
     Dosage: UNK
     Route: 065
  4. PROVERA [Suspect]
     Dosage: UNK

REACTIONS (6)
  - ADENOCARCINOMA [None]
  - BREAST CANCER METASTATIC [None]
  - METASTASES TO BONE [None]
  - METASTASES TO LYMPH NODES [None]
  - OESTROGEN RECEPTOR ASSAY POSITIVE [None]
  - PROGESTERONE RECEPTOR ASSAY POSITIVE [None]
